FAERS Safety Report 12914351 (Version 1)
Quarter: 2016Q4

REPORT INFORMATION
  Report Type: Spontaneous
  Country: US (occurrence: US)
  Receive Date: 20161106
  Receipt Date: 20161106
  Transmission Date: 20170207
  Serious: No
  Sender: FDA-Public Use
  Company Number: US-RELYPSA-RLY2016001574

PATIENT
  Age: 73 Year
  Sex: Male

DRUGS (5)
  1. LANTUS [Concomitant]
     Active Substance: INSULIN GLARGINE
  2. HUMULIN NOS [Concomitant]
     Active Substance: INSULIN HUMAN
  3. VELTASSA [Suspect]
     Active Substance: PATIROMER
     Dosage: 8.4 G, TWICE WEEKLY
     Route: 048
  4. VELTASSA [Suspect]
     Active Substance: PATIROMER
     Indication: HYPERKALAEMIA
     Dosage: 8.4 G, QD
     Route: 048
     Dates: start: 20160609
  5. LYRICA [Concomitant]
     Active Substance: PREGABALIN
     Dosage: 50 MG, UNKNOWN

REACTIONS (2)
  - Nausea [Unknown]
  - Off label use [Unknown]

NARRATIVE: CASE EVENT DATE: 201606
